FAERS Safety Report 21667929 (Version 1)
Quarter: 2022Q4

REPORT INFORMATION
  Report Type: Spontaneous
  Country: US (occurrence: None)
  Receive Date: 20221201
  Receipt Date: 20221201
  Transmission Date: 20230113
  Serious: Yes (Death)
  Sender: FDA-Public Use
  Company Number: 2022A391752

PATIENT
  Age: 69 Year
  Sex: Male

DRUGS (1)
  1. ZOMIG [Suspect]
     Active Substance: ZOLMITRIPTAN
     Dosage: 5.0MG UNKNOWN
     Route: 045

REACTIONS (1)
  - Death [Fatal]

NARRATIVE: CASE EVENT DATE: 20150902
